FAERS Safety Report 7713764-6 (Version None)
Quarter: 2011Q3

REPORT INFORMATION
  Report Type: 
  Country: None (occurrence: None)
  Receive Date: 20110826
  Receipt Date: 20110823
  Transmission Date: 20111222
  Serious: Yes (Hospitalization, Other)
  Sender: FDA-Public Use
  Company Number: US-PFIZER INC-2011153055

PATIENT
  Age: 63 Year
  Sex: Female

DRUGS (2)
  1. METFORMIN [Concomitant]
     Dosage: UNK
  2. CHANTIX [Suspect]
     Dosage: UNK
     Route: 048

REACTIONS (2)
  - MEMORY IMPAIRMENT [None]
  - PSYCHOTIC DISORDER [None]
